FAERS Safety Report 15552847 (Version 1)
Quarter: 2018Q4

REPORT INFORMATION
  Report Type: Report from Study
  Country: CA (occurrence: CA)
  Receive Date: 20181025
  Receipt Date: 20181025
  Transmission Date: 20190205
  Serious: Yes (Death, Hospitalization)
  Sender: FDA-Public Use
  Company Number: PHHY2017CA129611

PATIENT
  Age: 74 Year
  Sex: Female

DRUGS (2)
  1. ZOMETA [Suspect]
     Active Substance: ZOLEDRONIC ACID
     Indication: PRODUCT USED FOR UNKNOWN INDICATION
     Dosage: UNK
     Route: 065
  2. SANDOSTATIN LAR DEPOT [Suspect]
     Active Substance: OCTREOTIDE ACETATE
     Indication: PANCREATIC NEUROENDOCRINE TUMOUR METASTATIC
     Dosage: 30 MG, QMO
     Route: 030
     Dates: start: 20150507

REACTIONS (11)
  - General physical health deterioration [Unknown]
  - Lethargy [Unknown]
  - Death [Fatal]
  - Decreased appetite [Unknown]
  - Eating disorder [Unknown]
  - Malignant neoplasm progression [Not Recovered/Not Resolved]
  - Fatigue [Unknown]
  - Balance disorder [Unknown]
  - Asthenia [Unknown]
  - Pancreatic neuroendocrine tumour [Not Recovered/Not Resolved]
  - Weight decreased [Unknown]

NARRATIVE: CASE EVENT DATE: 20180822
